FAERS Safety Report 6051691-3 (Version None)
Quarter: 2009Q1

REPORT INFORMATION
  Report Type: 
  Country: None (occurrence: None)
  Receive Date: 20090121
  Receipt Date: 20090121
  Transmission Date: 20090719
  Serious: Yes (Other)
  Sender: FDA-Public Use
  Company Number: None

PATIENT
  Age: 29 Year
  Sex: Female
  Weight: 44.4525 kg

DRUGS (1)
  1. CETIRIZINE HCL [Suspect]
     Indication: MULTIPLE ALLERGIES
     Dosage: 1 TABLET ONCE DAILY PO
     Route: 048
     Dates: start: 20090115, end: 20090115

REACTIONS (3)
  - DIZZINESS [None]
  - FEELING HOT [None]
  - HYPERHIDROSIS [None]
